FAERS Safety Report 22614752 (Version 1)
Quarter: 2023Q2

REPORT INFORMATION
  Report Type: Spontaneous
  Country: US (occurrence: US)
  Receive Date: 20230619
  Receipt Date: 20230619
  Transmission Date: 20230721
  Serious: No
  Sender: FDA-Public Use
  Company Number: US-PFM-2022-04107

PATIENT
  Sex: Male
  Weight: 5.442 kg

DRUGS (1)
  1. HEMANGEOL [Suspect]
     Active Substance: PROPRANOLOL HYDROCHLORIDE
     Indication: Haemangioma
     Dosage: 2.2 ML, BID (2/DAY)
     Route: 048

REACTIONS (1)
  - Extra dose administered [Unknown]
